FAERS Safety Report 6196211-8 (Version None)
Quarter: 2009Q2

REPORT INFORMATION
  Report Type: 
  Country: None (occurrence: None)
  Receive Date: 20090520
  Receipt Date: 20090511
  Transmission Date: 20091009
  Serious: Yes (Death, Hospitalization)
  Sender: FDA-Public Use
  Company Number: FR-NOVOPROD-284400

PATIENT
  Age: 13 Year
  Sex: Male
  Weight: 55 kg

DRUGS (13)
  1. NOVOSEVEN [Suspect]
     Indication: SHOCK HAEMORRHAGIC
     Route: 042
     Dates: start: 20090127, end: 20090127
  2. NOVOSEVEN [Suspect]
     Dosage: 2.4 MG, SINGLE
     Route: 042
     Dates: start: 20090127, end: 20090127
  3. NOVOSEVEN [Suspect]
     Dosage: 4.8 MG, SINGLE
     Route: 042
     Dates: start: 20090127, end: 20090127
  4. NOVOSEVEN [Suspect]
     Dosage: 4.8 MG, SINGLE
     Route: 042
     Dates: start: 20090127, end: 20090127
  5. NOVOSEVEN [Suspect]
     Dosage: 1.2 MG, SINGLE
     Route: 042
     Dates: start: 20090127, end: 20090127
  6. SUFENTANIL [Concomitant]
     Dosage: 20 MICROG/HR
     Route: 042
     Dates: start: 20090127
  7. NORADRENALIN                       /00127501/ [Concomitant]
     Dosage: 2-8 MG/H
     Route: 042
     Dates: start: 20090127
  8. CLAFORAN [Concomitant]
     Dosage: 6 G, UNK
     Route: 042
     Dates: start: 20090127
  9. FLAGYL [Concomitant]
     Dosage: 1.5 G, UNK
     Route: 042
     Dates: start: 20090127
  10. GENTAMYCIN                         /00047101/ [Concomitant]
     Dosage: 180 MG, UNK
     Route: 042
     Dates: start: 20090127
  11. PLATELETS [Concomitant]
     Dosage: 4.5
     Route: 042
  12. FRESH FROZEN PLASMA [Concomitant]
     Dosage: 15
     Route: 042
  13. RED BLOOD CELLS [Concomitant]
     Dosage: 17
     Route: 042

REACTIONS (2)
  - ISCHAEMIA [None]
  - PERIPHERAL ISCHAEMIA [None]
